FAERS Safety Report 7640313-3 (Version None)
Quarter: 2011Q3

REPORT INFORMATION
  Report Type: 
  Country: None (occurrence: None)
  Receive Date: 20110728
  Receipt Date: 20110530
  Transmission Date: 20111222
  Serious: Yes (Disabling, Other)
  Sender: FDA-Public Use
  Company Number: BR-BAYER-2011-038786

PATIENT
  Age: 18 Year
  Sex: Female

DRUGS (1)
  1. BETASERON [Suspect]
     Dosage: 8 MIU, QOD
     Route: 058
     Dates: start: 20100701

REACTIONS (5)
  - VOMITING [None]
  - ABASIA [None]
  - BRAIN NEOPLASM BENIGN [None]
  - VIRAL INFECTION [None]
  - MOBILITY DECREASED [None]
